FAERS Safety Report 6803683-1 (Version None)
Quarter: 2010Q2

REPORT INFORMATION
  Report Type: 
  Country: None (occurrence: None)
  Receive Date: 20100628
  Receipt Date: 20100527
  Transmission Date: 20101027
  Serious: No
  Sender: FDA-Public Use
  Company Number: US-BAYER-201024746NA

PATIENT
  Age: 61 Year
  Sex: Female
  Weight: 96 kg

DRUGS (2)
  1. ULTRAVIST 300 [Suspect]
     Indication: COMPUTERISED TOMOGRAM THORAX
     Dosage: TOTAL DAILY DOSE: 100 ML
     Route: 042
     Dates: start: 20100527, end: 20100527
  2. ADVAIR DISKUS 100/50 [Concomitant]

REACTIONS (1)
  - URTICARIA [None]
